FAERS Safety Report 7285977-1 (Version None)
Quarter: 2011Q1

REPORT INFORMATION
  Report Type: 
  Country: None (occurrence: None)
  Receive Date: 20110210
  Receipt Date: 20110128
  Transmission Date: 20110831
  Serious: Yes (Death, Other)
  Sender: FDA-Public Use
  Company Number: JP-CEPHALON-2011000409

PATIENT
  Sex: Female
  Weight: 46 kg

DRUGS (16)
  1. FUROSEMIDE [Concomitant]
     Dates: end: 20101227
  2. ISOTONIC SOLUTIONS [Concomitant]
     Dates: start: 20101216, end: 20101222
  3. GRANISETRON HYDROCHLORIDE [Concomitant]
     Dates: start: 20101216, end: 20101217
  4. FLUCONAZOLE [Concomitant]
     Dates: end: 20110113
  5. PREGABALIN [Concomitant]
     Dates: end: 20110112
  6. MAGNESIUM OXIDE [Concomitant]
     Dates: end: 20110113
  7. ALLOPURINOL [Concomitant]
     Dates: end: 20110112
  8. ACICLOVIR [Concomitant]
     Dates: end: 20110113
  9. DEXAMETHASONE [Concomitant]
     Dates: start: 20101116, end: 20110113
  10. LAFUTIDINE [Concomitant]
     Dates: end: 20110113
  11. SODIUM BICARBONATE [Concomitant]
     Dates: start: 20101216, end: 20101222
  12. CHLORPHENIRAMINE MALEATE [Concomitant]
     Dates: start: 20101220, end: 20101221
  13. BENDAMUSTINE HCL [Suspect]
     Indication: MANTLE CELL LYMPHOMA
     Route: 041
     Dates: start: 20101216, end: 20101217
  14. SULFAMETHOXAZOLE AND TRIMETHOPRIM [Concomitant]
     Dates: end: 20110113
  15. URSODIOL [Concomitant]
     Dates: end: 20110113
  16. DEXAMEHTASONE SODIUM PHOSPHATE [Concomitant]
     Dates: start: 20101216, end: 20101217

REACTIONS (10)
  - NEUTROPHIL COUNT DECREASED [None]
  - MANTLE CELL LYMPHOMA [None]
  - BLOOD POTASSIUM DECREASED [None]
  - DISSEMINATED INTRAVASCULAR COAGULATION [None]
  - WHITE BLOOD CELL COUNT DECREASED [None]
  - DECREASED APPETITE [None]
  - PNEUMONITIS [None]
  - HAEMOGLOBIN DECREASED [None]
  - BLOOD SODIUM DECREASED [None]
  - HYPOALBUMINAEMIA [None]
